FAERS Safety Report 17951361 (Version 2)
Quarter: 2022Q3

REPORT INFORMATION
  Report Type: Spontaneous
  Country: US (occurrence: US)
  Receive Date: 20200626
  Receipt Date: 20220811
  Transmission Date: 20221026
  Serious: No
  Sender: FDA-Public Use
  Company Number: US-TEVA-2020-US-1791141

PATIENT
  Age: 59 Year
  Sex: Female

DRUGS (4)
  1. DESIPRAMINE HYDROCHLORIDE [Suspect]
     Active Substance: DESIPRAMINE HYDROCHLORIDE
     Indication: Product used for unknown indication
     Route: 065
  2. DESIPRAMINE HYDROCHLORIDE [Suspect]
     Active Substance: DESIPRAMINE HYDROCHLORIDE
     Indication: Product used for unknown indication
     Route: 065
  3. DESIPRAMINE [Suspect]
     Active Substance: DESIPRAMINE
     Indication: Product used for unknown indication
     Route: 065
  4. DESIPRAMINE [Suspect]
     Active Substance: DESIPRAMINE
     Indication: Product used for unknown indication
     Route: 065

REACTIONS (2)
  - Condition aggravated [Unknown]
  - Therapeutic product effect incomplete [Unknown]
